FAERS Safety Report 16590334 (Version 9)
Quarter: 2022Q1

REPORT INFORMATION
  Report Type: Spontaneous
  Country: US (occurrence: US)
  Receive Date: 20190718
  Receipt Date: 20220117
  Transmission Date: 20220423
  Serious: Yes (Other)
  Sender: FDA-Public Use
  Company Number: US-GILEAD-2019-0418487

PATIENT
  Age: 67 Year
  Sex: Male
  Weight: 67.574 kg

DRUGS (21)
  1. VIREAD [Suspect]
     Active Substance: TENOFOVIR DISOPROXIL FUMARATE
     Indication: HIV infection
     Route: 065
  2. TRUVADA [Suspect]
     Active Substance: EMTRICITABINE\TENOFOVIR DISOPROXIL FUMARATE
     Indication: HIV infection
     Dosage: UNK
     Route: 048
     Dates: start: 20100427, end: 201007
  3. EMTRIVA [Concomitant]
     Active Substance: EMTRICITABINE
  4. FUROSEMIDE [Concomitant]
     Active Substance: FUROSEMIDE
  5. ASPIRIN [Concomitant]
     Active Substance: ASPIRIN
  6. BACTRIM [Concomitant]
     Active Substance: SULFAMETHOXAZOLE\TRIMETHOPRIM
  7. EPZICOM [Concomitant]
     Active Substance: ABACAVIR SULFATE\LAMIVUDINE
  8. JULUCA [Concomitant]
     Active Substance: DOLUTEGRAVIR SODIUM\RILPIVIRINE HYDROCHLORIDE
  9. MEDROL [Concomitant]
     Active Substance: METHYLPREDNISOLONE
  10. NORVIR [Concomitant]
     Active Substance: RITONAVIR
  11. ALBUTEROL SULFATE [Concomitant]
     Active Substance: ALBUTEROL SULFATE
  12. ATORVASTATIN [Concomitant]
     Active Substance: ATORVASTATIN
  13. REYATAZ [Concomitant]
     Active Substance: ATAZANAVIR SULFATE
  14. LASIX [Concomitant]
     Active Substance: FUROSEMIDE
  15. TIVICAY [Concomitant]
     Active Substance: DOLUTEGRAVIR SODIUM
  16. ZIAGEN [Concomitant]
     Active Substance: ABACAVIR SULFATE
  17. ABACAVIR [Concomitant]
     Active Substance: ABACAVIR
  18. FOLIC ACID [Concomitant]
     Active Substance: FOLIC ACID
  19. OMEPRAZOLE [Concomitant]
     Active Substance: OMEPRAZOLE
  20. AVELOX [Concomitant]
     Active Substance: MOXIFLOXACIN HYDROCHLORIDE
  21. ROBITUSSIN (GUAIFENESIN) [Concomitant]
     Active Substance: GUAIFENESIN

REACTIONS (43)
  - Renal cortical necrosis [Unknown]
  - Kidney fibrosis [Unknown]
  - Acute kidney injury [Unknown]
  - Nephrosclerosis [Not Recovered/Not Resolved]
  - Chronic kidney disease [Unknown]
  - End stage renal disease [Not Recovered/Not Resolved]
  - Renal tubular necrosis [Not Recovered/Not Resolved]
  - Carpal tunnel decompression [Unknown]
  - Arteriosclerosis coronary artery [Unknown]
  - Dialysis [Unknown]
  - Renal failure [Not Recovered/Not Resolved]
  - Intervertebral disc protrusion [Unknown]
  - Nephropathy [Unknown]
  - Hypertension [Unknown]
  - Anhedonia [Not Recovered/Not Resolved]
  - Blood creatinine increased [Unknown]
  - Glomerular filtration rate decreased [Unknown]
  - Oedema peripheral [Unknown]
  - Proteinuria [Unknown]
  - Pain [Not Recovered/Not Resolved]
  - Emotional distress [Not Recovered/Not Resolved]
  - Anxiety [Not Recovered/Not Resolved]
  - Economic problem [Not Recovered/Not Resolved]
  - Drug hypersensitivity [Unknown]
  - Hyperkalaemia [Unknown]
  - Depression [Not Recovered/Not Resolved]
  - Arteriosclerosis [Unknown]
  - Dysphagia [Unknown]
  - Hernia [Unknown]
  - Large intestine polyp [Unknown]
  - Cholelithiasis [Unknown]
  - Dyslipidaemia [Unknown]
  - Hepatitis A [Unknown]
  - Psoriasis [Unknown]
  - Erectile dysfunction [Unknown]
  - Chronic obstructive pulmonary disease [Unknown]
  - Hyperparathyroidism secondary [Unknown]
  - Anaemia [Unknown]
  - Vitamin D deficiency [Unknown]
  - Dyspnoea [Not Recovered/Not Resolved]
  - Fatigue [Not Recovered/Not Resolved]
  - Insomnia [Not Recovered/Not Resolved]
  - Decreased appetite [Not Recovered/Not Resolved]

NARRATIVE: CASE EVENT DATE: 20100616
